FAERS Safety Report 17681522 (Version 2)
Quarter: 2020Q2

REPORT INFORMATION
  Report Type: Spontaneous
  Country: US (occurrence: US)
  Receive Date: 20200417
  Receipt Date: 20200420
  Transmission Date: 20200714
  Serious: Yes (Hospitalization, Other)
  Sender: FDA-Public Use
  Company Number: US-SHIRE-US202013586

PATIENT
  Sex: Female

DRUGS (1)
  1. GATTEX [Suspect]
     Active Substance: TEDUGLUTIDE\WATER
     Indication: SHORT-BOWEL SYNDROME
     Dosage: 3.08 MILLIGRAM, 1X/DAY:QD
     Route: 065

REACTIONS (4)
  - Joint swelling [Unknown]
  - Rash [Unknown]
  - Dehydration [Unknown]
  - Pancreatitis [Unknown]
